FAERS Safety Report 9604080 (Version 1)
Quarter: 2013Q4

REPORT INFORMATION
  Report Type: Spontaneous
  Country: US (occurrence: US)
  Receive Date: 20131008
  Receipt Date: 20131008
  Transmission Date: 20140711
  Serious: Yes (Other)
  Sender: FDA-Public Use
  Company Number: US-ASTRAZENECA-2013SE72636

PATIENT
  Age: 45 Year
  Sex: Male
  Weight: 88.5 kg

DRUGS (5)
  1. SYMBICORT [Suspect]
     Indication: ASTHMA
     Dosage: 2 PUFFS, BID
     Route: 055
     Dates: start: 2009
  2. SYMBICORT [Suspect]
     Indication: ASTHMA
     Dosage: 2 PUFFS, BID
     Route: 055
     Dates: start: 20130907
  3. VENTOLIN [Concomitant]
     Indication: ASTHMA
     Dosage: 2 PUFFS, PRN
     Dates: start: 2009
  4. BROMIDE ALBUTEROL NEBULIZER [Concomitant]
     Indication: ASTHMA
     Dates: start: 2009
  5. ALLERGY SHOTS [Concomitant]
     Indication: MULTIPLE ALLERGIES
     Dates: start: 2010

REACTIONS (7)
  - Jaw fracture [Unknown]
  - Chronic obstructive pulmonary disease [Unknown]
  - Asthma [Not Recovered/Not Resolved]
  - Dyspnoea [Not Recovered/Not Resolved]
  - Abasia [Unknown]
  - Hypersensitivity [Unknown]
  - Off label use [Unknown]
